FAERS Safety Report 7742196-X (Version None)
Quarter: 2011Q3

REPORT INFORMATION
  Report Type: 
  Country: None (occurrence: None)
  Receive Date: 20110826
  Receipt Date: 20110816
  Transmission Date: 20111222
  Serious: Yes (Hospitalization)
  Sender: FDA-Public Use
  Company Number: 2010SP009218

PATIENT
  Age: 26 Year
  Sex: Female
  Weight: 59.8748 kg

DRUGS (1)
  1. NUVARING [Suspect]
     Indication: CONTRACEPTION
     Dates: start: 20030101, end: 20080301

REACTIONS (24)
  - TRICUSPID VALVE INCOMPETENCE [None]
  - PULMONARY EMBOLISM [None]
  - FALL [None]
  - SPLENIC CALCIFICATION [None]
  - CHOLELITHIASIS [None]
  - DILATATION VENTRICULAR [None]
  - RIGHT ATRIAL DILATATION [None]
  - SICKLE CELL ANAEMIA WITH CRISIS [None]
  - PULMONARY INFARCTION [None]
  - RESPIRATORY ARREST [None]
  - PNEUMONIA [None]
  - ABNORMAL BEHAVIOUR [None]
  - BLOOD PRESSURE SYSTOLIC DECREASED [None]
  - MENTAL STATUS CHANGES [None]
  - VENTRICULAR HYPOKINESIA [None]
  - FUNGAL INFECTION [None]
  - PLEURAL EFFUSION [None]
  - BONE LESION [None]
  - LUNG INFILTRATION [None]
  - MULTIPLE INJURIES [None]
  - BONE INFARCTION [None]
  - SCREAMING [None]
  - RIGHT VENTRICULAR DYSFUNCTION [None]
  - MITRAL VALVE INCOMPETENCE [None]
